FAERS Safety Report 12990721 (Version 1)
Quarter: 2016Q4

REPORT INFORMATION
  Report Type: Spontaneous
  Country: CO (occurrence: CO)
  Receive Date: 20161201
  Receipt Date: 20161201
  Transmission Date: 20170207
  Serious: Yes (Death, Other)
  Sender: FDA-Public Use
  Company Number: CO-PFIZER INC-2016556388

PATIENT
  Age: 87 Year
  Sex: Male
  Weight: 80 kg

DRUGS (3)
  1. FENTANYL CITRATE. [Suspect]
     Active Substance: FENTANYL CITRATE
     Indication: SEDATION
     Dosage: UNK
  2. MIDAZOLAM [Suspect]
     Active Substance: MIDAZOLAM\MIDAZOLAM HYDROCHLORIDE
     Indication: SEDATION
     Dosage: UNK
  3. PANCURONIUM [Suspect]
     Active Substance: PANCURONIUM
     Indication: SEDATION
     Dosage: UNK

REACTIONS (1)
  - Cardiac arrest [Fatal]

NARRATIVE: CASE EVENT DATE: 20160319
